FAERS Safety Report 5722471-0 (Version None)
Quarter: 2008Q2

REPORT INFORMATION
  Report Type: 
  Country: None (occurrence: None)
  Receive Date: 20080429
  Receipt Date: 20070907
  Transmission Date: 20081010
  Serious: No
  Sender: FDA-Public Use
  Company Number: US-ASTRAZENECA-2007UW21285

PATIENT
  Age: 63 Year
  Sex: Male
  Weight: 102.1 kg

DRUGS (6)
  1. NEXIUM [Suspect]
     Indication: DYSPEPSIA
     Route: 048
     Dates: start: 20060101
  2. NORVASC [Concomitant]
  3. VASOTEC [Concomitant]
  4. GLYBURIDE [Concomitant]
  5. METFORMIN HCL [Concomitant]
  6. VIAGRA [Concomitant]

REACTIONS (1)
  - CHROMATURIA [None]
